FAERS Safety Report 9540824 (Version 1)
Quarter: 2013Q3

REPORT INFORMATION
  Report Type: Spontaneous
  Country: BR (occurrence: BR)
  Receive Date: 20130920
  Receipt Date: 20130920
  Transmission Date: 20140515
  Serious: Yes (Other)
  Sender: FDA-Public Use
  Company Number: PHHY2013BR104918

PATIENT
  Age: 9 Year
  Sex: Male
  Weight: 34 kg

DRUGS (6)
  1. RITALIN LA [Suspect]
     Indication: ATTENTION DEFICIT/HYPERACTIVITY DISORDER
     Dosage: 1 DF, DAILY
     Route: 048
     Dates: start: 2009
  2. NEBACETIN /00037701/ [Suspect]
     Indication: SKIN ULCER
     Dosage: UNK UKN, QD
     Route: 061
  3. AMOXICILINA + ACIDO CLAVULONICO [Suspect]
     Indication: OROPHARYNGEAL PAIN
     Dosage: 1 DF, BID
  4. BACTROBAN /UNK/ [Suspect]
     Indication: ANTIBIOTIC PROPHYLAXIS
     Dosage: 1 UKN, DAILY (1 APPLICATION DAILY)
  5. RISPERIDONA [Concomitant]
     Indication: PSYCHOMOTOR HYPERACTIVITY
     Dosage: 0.5 MG, UNK
     Route: 048
  6. RISPERIDONA [Concomitant]
     Indication: IMPULSIVE BEHAVIOUR

REACTIONS (13)
  - Impetigo [Not Recovered/Not Resolved]
  - Staphylococcal skin infection [Not Recovered/Not Resolved]
  - Skin ulcer [Not Recovered/Not Resolved]
  - Staphylococcal infection [Not Recovered/Not Resolved]
  - Oropharyngeal pain [Not Recovered/Not Resolved]
  - Otorrhoea [Recovered/Resolved]
  - Hearing impaired [Recovered/Resolved]
  - Mass [Recovered/Resolved]
  - Aggression [Recovered/Resolved]
  - Delusion [Recovered/Resolved]
  - Eating disorder [Not Recovered/Not Resolved]
  - Adenoidal disorder [Unknown]
  - Agitation [Recovered/Resolved]
